FAERS Safety Report 9026605 (Version 1)
Quarter: 2013Q1

REPORT INFORMATION
  Report Type: Spontaneous
  Country: US (occurrence: None)
  Receive Date: 20130114
  Receipt Date: 20130114
  Transmission Date: 20140127
  Serious: Yes (Death)
  Sender: FDA-Public Use
  Company Number: None

PATIENT
  Sex: Female
  Weight: 54.43 kg

DRUGS (1)
  1. ADVANDA [Suspect]
     Indication: DIABETES MELLITUS

REACTIONS (2)
  - Hypertension [None]
  - Cardiovascular disorder [None]
